FAERS Safety Report 4583443-5 (Version None)
Quarter: 2005Q1

REPORT INFORMATION
  Report Type: 
  Country: None (occurrence: None)
  Receive Date: 20050211
  Receipt Date: 20041202
  Transmission Date: 20050727
  Serious: Yes (Hospitalization)
  Sender: FDA-Public Use
  Company Number: 2004-12-0143

PATIENT
  Age: 27 Year
  Sex: Male
  Weight: 60.782 kg

DRUGS (5)
  1. METHOTREXATE [Suspect]
     Indication: ACUTE LYMPHOCYTIC LEUKAEMIA
     Dosage: INTRATHECAL
     Route: 037
  2. CHEMOTHERAPY REGIMENS [Suspect]
     Indication: ACUTE LYMPHOCYTIC LEUKAEMIA
  3. PEG-INTRON [Suspect]
     Indication: HEPATITIS C
     Dosage: 30 MCG QWK SUBCUTANEOUS
     Route: 058
     Dates: start: 20030711
  4. LEVOXYL [Concomitant]
  5. NADOLOL [Concomitant]

REACTIONS (7)
  - ACUTE LYMPHOCYTIC LEUKAEMIA [None]
  - BONE DISORDER [None]
  - BONE MARROW TRANSPLANT [None]
  - HEPATIC CIRRHOSIS [None]
  - HEPATITIS C [None]
  - LIP AND/OR ORAL CAVITY CANCER [None]
  - NEOPLASM RECURRENCE [None]
